APPROVED DRUG PRODUCT: BECONASE
Active Ingredient: BECLOMETHASONE DIPROPIONATE
Strength: 0.042MG/INH
Dosage Form/Route: AEROSOL, METERED;NASAL
Application: N018584 | Product #001
Applicant: GLAXOSMITHKLINE
Approved: Approved Prior to Jan 1, 1982 | RLD: No | RS: No | Type: DISCN